FAERS Safety Report 5275627-8 (Version None)
Quarter: 2007Q1

REPORT INFORMATION
  Report Type: 
  Country: None (occurrence: None)
  Receive Date: 20070326
  Receipt Date: 20070314
  Transmission Date: 20070707
  Serious: Yes (Hospitalization)
  Sender: FDA-Public Use
  Company Number: PHEH2007US03140

PATIENT

DRUGS (2)
  1. CLOZARIL [Suspect]
  2. DEPAKOTE [Suspect]

REACTIONS (4)
  - BLOOD TRIGLYCERIDES INCREASED [None]
  - DRUG TOXICITY [None]
  - LIPIDS INCREASED [None]
  - PANCREATITIS [None]
